FAERS Safety Report 4409693-6 (Version None)
Quarter: 2004Q3

REPORT INFORMATION
  Report Type: 
  Country: None (occurrence: None)
  Receive Date: 20040727
  Receipt Date: 20040727
  Transmission Date: 20050211
  Serious: Yes (Other)
  Sender: FDA-Public Use
  Company Number: None

PATIENT
  Sex: Male
  Weight: 78.0187 kg

DRUGS (1)
  1. LEXAPRO [Suspect]
     Dosage: 10 MG 1 A DAY ORAL
     Route: 048

REACTIONS (3)
  - DYSGEUSIA [None]
  - NAUSEA [None]
  - PAROSMIA [None]
